FAERS Safety Report 18160411 (Version 1)
Quarter: 2020Q3

REPORT INFORMATION
  Report Type: Spontaneous
  Country: US (occurrence: US)
  Receive Date: 20200817
  Receipt Date: 20200817
  Transmission Date: 20201103
  Serious: No
  Sender: FDA-Public Use
  Company Number: US-PFIZER INC-2020315495

PATIENT
  Age: 47 Year
  Sex: Female
  Weight: 56.7 kg

DRUGS (3)
  1. IBRANCE [Suspect]
     Active Substance: PALBOCICLIB
     Dosage: 75 MG, CYCLIC (1 CAPSULE BY MOUTH PER DAY FOR 21 DAYS ON AND THEN 7 DAYS OFF)
     Route: 048
  2. IBRANCE [Suspect]
     Active Substance: PALBOCICLIB
     Indication: BREAST CANCER METASTATIC
     Dosage: 125 MG, CYCLIC (1 CAPSULE PER DAY FOR 21 DAYS ON AND THE OFF FOR 7 DAYS)
     Route: 048
  3. IBRANCE [Suspect]
     Active Substance: PALBOCICLIB
     Dosage: 100 MG, CYCLIC (1 CAPSULE PER DAY FOR 21 DAYS ON AND OFF FOR 7 DAYS)
     Route: 048

REACTIONS (5)
  - Neutrophil count decreased [Recovering/Resolving]
  - White blood cell count decreased [Recovering/Resolving]
  - Blood count abnormal [Recovering/Resolving]
  - Dyspnoea [Recovered/Resolved]
  - Alopecia [Recovering/Resolving]
